FAERS Safety Report 13129346 (Version 2)
Quarter: 2017Q1

REPORT INFORMATION
  Report Type: Spontaneous
  Country: JP (occurrence: JP)
  Receive Date: 20170119
  Receipt Date: 20170120
  Transmission Date: 20170428
  Serious: Yes (Other)
  Sender: FDA-Public Use
  Company Number: JP-ROCHE-1881224

PATIENT
  Age: 38 Year
  Sex: Male

DRUGS (1)
  1. ACTEMRA [Suspect]
     Active Substance: TOCILIZUMAB
     Indication: STILL^S DISEASE ADULT ONSET
     Route: 065

REACTIONS (4)
  - Histiocytosis haematophagic [Recovered/Resolved]
  - Leukopenia [Unknown]
  - Off label use [Unknown]
  - Arthritis [Recovering/Resolving]
